FAERS Safety Report 5912859-7 (Version None)
Quarter: 2008Q4

REPORT INFORMATION
  Report Type: 
  Country: None (occurrence: None)
  Receive Date: 20081008
  Receipt Date: 20080930
  Transmission Date: 20090506
  Serious: Yes (Death, Other)
  Sender: FDA-Public Use
  Company Number: US-GENENTECH-268969

PATIENT
  Age: 48 Year
  Sex: Female

DRUGS (6)
  1. RITUXAN [Suspect]
     Indication: LYMPHOCYTIC LYMPHOMA
     Dosage: UNK
     Dates: start: 20030101
  2. RITUXAN [Suspect]
     Indication: CHRONIC LYMPHOCYTIC LEUKAEMIA
  3. FLUDARABINE PHOSPHATE [Concomitant]
     Indication: LYMPHOCYTIC LYMPHOMA
     Dosage: UNK
     Dates: start: 20030101
  4. FLUDARABINE PHOSPHATE [Concomitant]
     Indication: CHRONIC LYMPHOCYTIC LEUKAEMIA
  5. CYCLOPHOSPHAMIDE [Concomitant]
     Indication: CHRONIC LYMPHOCYTIC LEUKAEMIA
     Dosage: UNK
     Dates: start: 20030101
  6. CYCLOPHOSPHAMIDE [Concomitant]
     Indication: LYMPHOCYTIC LYMPHOMA

REACTIONS (1)
  - PROGRESSIVE MULTIFOCAL LEUKOENCEPHALOPATHY [None]
